FAERS Safety Report 7556948-2 (Version None)
Quarter: 2011Q2

REPORT INFORMATION
  Report Type: 
  Country: None (occurrence: None)
  Receive Date: 20110616
  Receipt Date: 20110616
  Transmission Date: 20111010
  Serious: Yes (Other)
  Sender: FDA-Public Use
  Company Number: None

PATIENT
  Sex: Female
  Weight: 56.246 kg

DRUGS (1)
  1. RECLAST [Suspect]
     Indication: OSTEOPOROSIS
     Dosage: 5MG YEARL IV
     Route: 042
     Dates: start: 20110601, end: 20110601

REACTIONS (4)
  - MUSCULOSKELETAL CHEST PAIN [None]
  - ABDOMINAL PAIN UPPER [None]
  - EYE SWELLING [None]
  - MUSCULAR WEAKNESS [None]
